FAERS Safety Report 14228762 (Version 1)
Quarter: 2017Q4

REPORT INFORMATION
  Report Type: Spontaneous
  Country: US (occurrence: None)
  Receive Date: 20171124
  Receipt Date: 20171124
  Transmission Date: 20180321
  Serious: No
  Sender: FDA-Public Use
  Company Number: None

PATIENT
  Sex: Male

DRUGS (1)
  1. NINLARO [Suspect]
     Active Substance: IXAZOMIB CITRATE
     Dosage: QW FOR 3 WEEKS THEN OFF FOR ONE WEEK
     Route: 048
     Dates: start: 20171103

REACTIONS (2)
  - Pain [None]
  - Hiccups [None]
